FAERS Safety Report 6409140-9 (Version None)
Quarter: 2009Q4

REPORT INFORMATION
  Report Type: 
  Country: None (occurrence: None)
  Receive Date: 20091021
  Receipt Date: 20091008
  Transmission Date: 20100525
  Serious: Yes (Other)
  Sender: FDA-Public Use
  Company Number: PHHY2009FR43617

PATIENT
  Age: 26 Year
  Sex: Male

DRUGS (2)
  1. AREDIA [Suspect]
     Indication: COMPLEX REGIONAL PAIN SYNDROME
     Dosage: 50 MG, UNK
     Dates: start: 20090817
  2. PARACETAMOL [Concomitant]
     Dosage: UNK
     Dates: start: 20090818

REACTIONS (4)
  - INFLUENZA LIKE ILLNESS [None]
  - PAIN IN EXTREMITY [None]
  - PNEUMATIC COMPRESSION THERAPY [None]
  - THROMBOPHLEBITIS SUPERFICIAL [None]
